FAERS Safety Report 18587655 (Version 4)
Quarter: 2021Q1

REPORT INFORMATION
  Report Type: Report from Study
  Country: US (occurrence: US)
  Receive Date: 20201207
  Receipt Date: 20210226
  Transmission Date: 20210419
  Serious: Yes (Death)
  Sender: FDA-Public Use
  Company Number: NVSC2020US325610

PATIENT
  Age: 69 Year
  Sex: Female
  Weight: 100 kg

DRUGS (1)
  1. COSENTYX [Suspect]
     Active Substance: SECUKINUMAB
     Indication: PRODUCT USED FOR UNKNOWN INDICATION
     Dosage: UNK
     Route: 065

REACTIONS (1)
  - Hepatic cirrhosis [Fatal]

NARRATIVE: CASE EVENT DATE: 20151015
